FAERS Safety Report 23992242 (Version 2)
Quarter: 2024Q3

REPORT INFORMATION
  Report Type: Report from Study
  Country: CH (occurrence: CH)
  Receive Date: 20240620
  Receipt Date: 20240813
  Transmission Date: 20241016
  Serious: Yes (Other)
  Sender: ABBVIE
  Company Number: CH-ABBVIE-5802153

PATIENT
  Sex: Female

DRUGS (3)
  1. CARBIDOPA\LEVODOPA [Suspect]
     Active Substance: CARBIDOPA\LEVODOPA
     Indication: Parkinson^s disease
     Dosage: FREQUENCY TEXT: 24H THERAPY
     Route: 050
     Dates: start: 20220609
  2. CARBIDOPA\LEVODOPA [Suspect]
     Active Substance: CARBIDOPA\LEVODOPA
     Dosage: MD: 3.0 ML, CRD: 2.7 ML/H, ED: 1.00  ML; CRN: 1.0 ML/H?FREQUENCY TEXT: 24H THERAPY
     Route: 050
     Dates: start: 20231231, end: 20240213
  3. CARBIDOPA\LEVODOPA [Suspect]
     Active Substance: CARBIDOPA\LEVODOPA
     Dosage: MD: 3.0 ML, CRD: 2.4 ML/H, ED: 1.00  ML; CRN: 1.2 ML/H
     Route: 050
     Dates: start: 20240213

REACTIONS (20)
  - Suicide attempt [Unknown]
  - Product administration error [Not Recovered/Not Resolved]
  - Stress [Not Recovered/Not Resolved]
  - Depression [Not Recovered/Not Resolved]
  - Illusion [Not Recovered/Not Resolved]
  - Histrionic personality disorder [Not Recovered/Not Resolved]
  - Restless legs syndrome [Not Recovered/Not Resolved]
  - Drug dependence [Not Recovered/Not Resolved]
  - Hallucination [Not Recovered/Not Resolved]
  - Intentional product misuse [Not Recovered/Not Resolved]
  - Disorientation [Not Recovered/Not Resolved]
  - Dyskinesia [Recovering/Resolving]
  - Akinesia [Not Recovered/Not Resolved]
  - Compulsions [Not Recovered/Not Resolved]
  - Irritability [Not Recovered/Not Resolved]
  - Living in residential institution [Not Recovered/Not Resolved]
  - Feeling abnormal [Unknown]
  - Defaecation urgency [Not Recovered/Not Resolved]
  - Gait disturbance [Unknown]
  - Wheelchair user [Unknown]
